FAERS Safety Report 7082445-7 (Version None)
Quarter: 2010Q4

REPORT INFORMATION
  Report Type: 
  Country: None (occurrence: None)
  Receive Date: 20101102
  Receipt Date: 20101102
  Transmission Date: 20110411
  Serious: Yes (Life-Threatening)
  Sender: FDA-Public Use
  Company Number: None

PATIENT
  Age: 33 Year
  Sex: Male

DRUGS (1)
  1. CLINDAMYCIN [Suspect]
     Indication: ORAL INFECTION
     Dosage: 300 MG QID PO
     Route: 048
     Dates: start: 20100921, end: 20100922

REACTIONS (3)
  - ANGIOEDEMA [None]
  - ERYTHEMA [None]
  - EYE SWELLING [None]
